FAERS Safety Report 25090279 (Version 1)
Quarter: 2025Q1

REPORT INFORMATION
  Report Type: Spontaneous
  Country: NL (occurrence: NL)
  Receive Date: 20250318
  Receipt Date: 20250318
  Transmission Date: 20250408
  Serious: Yes (Hospitalization, Other)
  Sender: ALKEM
  Company Number: NL-ALKEM LABORATORIES LIMITED-NL-ALKEM-2025-02768

PATIENT
  Age: 64 Year
  Sex: Male

DRUGS (2)
  1. OLANZAPINE [Suspect]
     Active Substance: OLANZAPINE
     Indication: Schizophrenia
     Route: 030
  2. OLANZAPINE [Suspect]
     Active Substance: OLANZAPINE
     Route: 030

REACTIONS (2)
  - Post-injection delirium sedation syndrome [Recovered/Resolved]
  - Anticholinergic effect [Recovered/Resolved]
